FAERS Safety Report 12651469 (Version 1)
Quarter: 2016Q3

REPORT INFORMATION
  Report Type: Report from Study
  Country: US (occurrence: US)
  Receive Date: 20160815
  Receipt Date: 20160815
  Transmission Date: 20161109
  Serious: Yes (Other)
  Sender: FDA-Public Use
  Company Number: US-BAYER-2014-058685

PATIENT
  Age: 58 Year
  Sex: Female
  Weight: 58.96 kg

DRUGS (11)
  1. ADEMPAS [Suspect]
     Active Substance: RIOCIGUAT
     Indication: PULMONARY ARTERIAL HYPERTENSION
     Dosage: 1.5 MG, TID
     Route: 048
     Dates: start: 20140327
  2. ADEMPAS [Suspect]
     Active Substance: RIOCIGUAT
     Indication: CONNECTIVE TISSUE DISORDER
     Dosage: 1.5 MG, TID
     Route: 048
     Dates: start: 20140328
  3. ADEMPAS [Suspect]
     Active Substance: RIOCIGUAT
     Indication: PULMONARY ARTERIAL HYPERTENSION
     Dosage: 0.5 MG, TID
     Route: 048
     Dates: start: 20160520
  4. ADEMPAS [Suspect]
     Active Substance: RIOCIGUAT
     Indication: PULMONARY ARTERIAL HYPERTENSION
     Dosage: 1 MG, TID
     Route: 048
  5. ADEMPAS [Suspect]
     Active Substance: RIOCIGUAT
     Indication: PULMONARY ARTERIAL HYPERTENSION
     Dosage: UNK
     Dates: start: 20160520
  6. ADEMPAS [Suspect]
     Active Substance: RIOCIGUAT
     Indication: PULMONARY ARTERIAL HYPERTENSION
     Dosage: 1.5 MG, TID
     Route: 048
  7. VELETRI [Concomitant]
     Active Substance: EPOPROSTENOL
  8. ADEMPAS [Suspect]
     Active Substance: RIOCIGUAT
     Indication: PULMONARY HYPERTENSION
     Dosage: 1 MG, TID
     Route: 048
     Dates: start: 20140328
  9. LETAIRIS [Concomitant]
     Active Substance: AMBRISENTAN
  10. ADEMPAS [Suspect]
     Active Substance: RIOCIGUAT
     Indication: PULMONARY ARTERIAL HYPERTENSION
     Dosage: 1.5 MG, TID
     Route: 048
  11. ADEMPAS [Suspect]
     Active Substance: RIOCIGUAT
     Indication: PULMONARY ARTERIAL HYPERTENSION
     Dosage: 1 MG, TID
     Route: 048
     Dates: start: 20140621

REACTIONS (17)
  - Dyspnoea exertional [None]
  - Restless legs syndrome [Unknown]
  - Pericardial effusion [None]
  - Diarrhoea [None]
  - Limb discomfort [None]
  - Insomnia [Not Recovered/Not Resolved]
  - Restlessness [None]
  - Oedema peripheral [None]
  - Diarrhoea [Not Recovered/Not Resolved]
  - Feeling abnormal [None]
  - Blood pressure decreased [None]
  - Pain in jaw [Not Recovered/Not Resolved]
  - Anxiety [None]
  - Oxygen saturation decreased [None]
  - Agitation [None]
  - Pulmonary arterial pressure increased [None]
  - Hypotension [None]
